FAERS Safety Report 19886613 (Version 1)
Quarter: 2021Q3

REPORT INFORMATION
  Report Type: Report from Study
  Country: FR (occurrence: FR)
  Receive Date: 20210927
  Receipt Date: 20210927
  Transmission Date: 20211014
  Serious: Yes (Death, Other)
  Sender: FDA-Public Use
  Company Number: FR-PFIZER INC-202101252417

PATIENT

DRUGS (2)
  1. RALTITREXED [Suspect]
     Active Substance: RALTITREXED
     Indication: COLORECTAL CANCER METASTATIC
     Dosage: UNK UNK, CYCLIC
  2. IRINOTECAN HCL [Suspect]
     Active Substance: IRINOTECAN HYDROCHLORIDE
     Indication: COLORECTAL CANCER METASTATIC
     Dosage: UNK UNK, CYCLIC

REACTIONS (3)
  - Diarrhoea [Fatal]
  - Septic shock [Fatal]
  - Acute kidney injury [Fatal]
